FAERS Safety Report 12123101 (Version 1)
Quarter: 2016Q1

REPORT INFORMATION
  Report Type: Spontaneous
  Country: US (occurrence: US)
  Receive Date: 20160227
  Receipt Date: 20160227
  Transmission Date: 20160526
  Serious: Yes (Hospitalization)
  Sender: FDA-Public Use
  Company Number: US-AUROBINDO-AUR-APL-2016-01833

PATIENT
  Age: 67 Year
  Sex: Male

DRUGS (2)
  1. PHENYTOIN. [Suspect]
     Active Substance: PHENYTOIN
     Indication: PARTIAL SEIZURES
     Dosage: UNK
     Route: 065
     Dates: start: 2003
  2. ALBUTEROL                          /00139501/ [Concomitant]
     Active Substance: ALBUTEROL
     Indication: PRODUCT USED FOR UNKNOWN INDICATION
     Route: 065

REACTIONS (11)
  - Bronchiolitis [Unknown]
  - Activities of daily living impaired [Unknown]
  - Toxic epidermal necrolysis [Unknown]
  - Stevens-Johnson syndrome [Unknown]
  - Pneumonia [Unknown]
  - Staphylococcal skin infection [Unknown]
  - Rash generalised [Unknown]
  - Dyspnoea [Unknown]
  - Obliterative bronchiolitis [Unknown]
  - Tremor [Unknown]
  - Hepatic enzyme abnormal [Unknown]
